FAERS Safety Report 5995906-6 (Version None)
Quarter: 2008Q4

REPORT INFORMATION
  Report Type: 
  Country: None (occurrence: None)
  Receive Date: 20081212
  Receipt Date: 20081003
  Transmission Date: 20090506
  Serious: No
  Sender: FDA-Public Use
  Company Number: US-ABBOTT-08P-163-0479908-00

PATIENT
  Sex: Female
  Weight: 49.94 kg

DRUGS (6)
  1. HUMIRA [Suspect]
     Indication: ANKYLOSING SPONDYLITIS
     Route: 058
     Dates: start: 20080201, end: 20080401
  2. HUMIRA [Suspect]
     Dates: start: 20080901
  3. CYCLOBENZAPRINE HCL [Concomitant]
     Indication: MUSCLE SPASMS
     Route: 048
     Dates: start: 20010101
  4. ESCITALOPRAM OXALATE [Concomitant]
     Indication: DEPRESSION
     Route: 048
     Dates: start: 20060101
  5. CLONAZEPAM [Concomitant]
     Indication: SLEEP DISORDER
     Dosage: TWO TABLETS AT HOUR OF SLEEP
     Route: 048
     Dates: start: 20040101
  6. HORMONE REPLACEMENT [Concomitant]
     Indication: HORMONE REPLACEMENT THERAPY
     Route: 048
     Dates: start: 20060101

REACTIONS (2)
  - ERYTHEMA [None]
  - INJECTION SITE SWELLING [None]
